FAERS Safety Report 21047577 (Version 1)
Quarter: 2022Q3

REPORT INFORMATION
  Report Type: Spontaneous
  Country: US (occurrence: US)
  Receive Date: 20220706
  Receipt Date: 20220706
  Transmission Date: 20221027
  Serious: Yes (Hospitalization)
  Sender: FDA-Public Use
  Company Number: US-MYLANLABS-2022M1050172

PATIENT
  Age: 32 Year
  Sex: Female

DRUGS (23)
  1. DOXORUBICIN [Suspect]
     Active Substance: DOXORUBICIN
     Indication: B precursor type acute leukaemia
     Dosage: UNK, CYCLE (PART OF HYPER-CVAD REGIMEN)
     Route: 065
     Dates: start: 2019
  2. DOXORUBICIN [Suspect]
     Active Substance: DOXORUBICIN
     Dosage: UNK, CYCLE (PART OF HYPER-CVAD REGIMEN)
     Route: 065
     Dates: start: 202102
  3. DEXAMETHASONE [Suspect]
     Active Substance: DEXAMETHASONE
     Indication: B precursor type acute leukaemia
     Dosage: UNK, CYCLE (PART OF HYPER-CVAD REGIMEN)
     Route: 065
     Dates: start: 2019
  4. DEXAMETHASONE [Suspect]
     Active Substance: DEXAMETHASONE
     Dosage: UNK, CYCLE (PART OF HYPER-CVAD REGIMEN)
     Route: 065
     Dates: start: 202102
  5. METHOTREXATE [Suspect]
     Active Substance: METHOTREXATE
     Indication: B precursor type acute leukaemia
     Dosage: UNK
     Route: 037
     Dates: start: 2019
  6. METHOTREXATE [Suspect]
     Active Substance: METHOTREXATE
     Indication: Nervous system disorder prophylaxis
     Dosage: EVERY 2 WEEKS FOR FIVE CYCLES
     Route: 037
     Dates: start: 2020
  7. METHOTREXATE [Suspect]
     Active Substance: METHOTREXATE
     Indication: B precursor type acute leukaemia
     Dosage: PART OF POMP REGIMEN
     Route: 065
     Dates: start: 201908
  8. METHOTREXATE [Suspect]
     Active Substance: METHOTREXATE
     Dosage: HIGH DOSE METHOTREXATE
     Route: 065
     Dates: start: 2020
  9. MERCAPTOPURINE [Suspect]
     Active Substance: MERCAPTOPURINE
     Indication: B precursor type acute leukaemia
     Dosage: PART OF POMP REGIMEN
     Route: 065
     Dates: start: 201908
  10. PREDNISONE [Suspect]
     Active Substance: PREDNISONE
     Indication: B precursor type acute leukaemia
     Dosage: PART OF POMP REGIMEN
     Route: 065
     Dates: start: 201908
  11. HYDROCORTISONE [Suspect]
     Active Substance: HYDROCORTISONE
     Indication: B precursor type acute leukaemia
     Dosage: UNK, CYCLE (EVERY 2 WEEKS FOR FIVE CYCLES)
     Route: 065
     Dates: start: 2020
  12. CYTARABINE [Suspect]
     Active Substance: CYTARABINE
     Indication: B precursor type acute leukaemia
     Dosage: UNK, CYCLE (EVERY 2 WEEKS FOR FIVE CYCLES)
     Route: 065
     Dates: start: 2020
  13. ETOPOSIDE [Suspect]
     Active Substance: ETOPOSIDE
     Indication: B precursor type acute leukaemia
     Dosage: UNK
     Route: 065
     Dates: start: 202101
  14. IFOSFAMIDE [Suspect]
     Active Substance: IFOSFAMIDE
     Indication: B precursor type acute leukaemia
     Dosage: UNK
     Route: 065
     Dates: start: 202101
  15. MITOXANTRONE [Suspect]
     Active Substance: MITOXANTRONE HYDROCHLORIDE
     Indication: B precursor type acute leukaemia
     Dosage: UNK
     Route: 065
     Dates: start: 202101
  16. VINCRISTINE SULFATE [Suspect]
     Active Substance: VINCRISTINE SULFATE
     Indication: B precursor type acute leukaemia
     Dosage: UNK UNK, CYCLE (PART OF HYPER-CVAD REGIMEN)
     Dates: start: 2019
  17. VINCRISTINE SULFATE [Suspect]
     Active Substance: VINCRISTINE SULFATE
     Dosage: PART OF POMP REGIMEN
     Route: 065
     Dates: start: 201908
  18. VINCRISTINE SULFATE [Suspect]
     Active Substance: VINCRISTINE SULFATE
     Dosage: UNK UNK, CYCLE (PART OF HYPER-CVAD REGIMEN)
     Route: 065
     Dates: start: 202102
  19. CYCLOPHOSPHAMIDE [Suspect]
     Active Substance: CYCLOPHOSPHAMIDE
     Indication: B precursor type acute leukaemia
     Dosage: UNK UNK, CYCLE (PART OF HYPER-CVAD REGIMEN)
     Route: 065
     Dates: start: 2019
  20. CYCLOPHOSPHAMIDE [Suspect]
     Active Substance: CYCLOPHOSPHAMIDE
     Dosage: UNK UNK, CYCLE (PART OF HYPER-CVAD REGIMEN)
     Route: 065
     Dates: start: 202102
  21. DASATINIB [Suspect]
     Active Substance: DASATINIB
     Indication: B precursor type acute leukaemia
     Dosage: UNK
     Route: 065
     Dates: start: 2019
  22. METHYLPREDNISOLONE [Suspect]
     Active Substance: METHYLPREDNISOLONE
     Indication: Immunosuppressant drug therapy
     Dosage: UNK
     Route: 065
     Dates: start: 202101
  23. PERCOCET [Concomitant]
     Active Substance: ACETAMINOPHEN\OXYCODONE HYDROCHLORIDE
     Indication: Product used for unknown indication
     Dosage: UNK
     Route: 065

REACTIONS (4)
  - Acute respiratory failure [Unknown]
  - Pulmonary oedema [Unknown]
  - Pericardial effusion [Unknown]
  - Strongyloidiasis [Recovered/Resolved]
